FAERS Safety Report 9664632 (Version 2)
Quarter: 2014Q2

REPORT INFORMATION
  Report Type: Spontaneous
  Country: US (occurrence: US)
  Receive Date: 20131101
  Receipt Date: 20140507
  Transmission Date: 20141212
  Serious: Yes (Hospitalization)
  Sender: FDA-Public Use
  Company Number: US-B.I. PHARMACEUTICALS,INC./RIDGEFIELD-2013-BI-34739BP

PATIENT
  Age: 86 Year
  Sex: Male
  Weight: 86.18 kg

DRUGS (15)
  1. PRADAXA [Suspect]
     Indication: ATRIAL FIBRILLATION
     Dosage: 300 MG
     Route: 048
     Dates: start: 20111029, end: 20120116
  2. CALCIUM-VITAMIN D [Concomitant]
     Route: 048
  3. LANOXIN [Concomitant]
     Dosage: 0.125 MG
     Route: 048
     Dates: start: 2010
  4. LASIX [Concomitant]
     Dosage: 40 MG
     Route: 048
     Dates: start: 2010
  5. GLUCOSAMINE-CHONDROITIN MSM [Concomitant]
     Route: 048
  6. ANUSOL HC [Concomitant]
     Indication: PRURITUS
     Route: 054
  7. IRON [Concomitant]
     Route: 048
  8. SYNTHROID [Concomitant]
     Dosage: 100 MCG
     Route: 048
     Dates: start: 2010
  9. LUTEIN/ZEAXANTHIN [Concomitant]
     Route: 048
  10. GLUCOPHAGE [Concomitant]
     Dosage: 2000 MG
     Route: 048
     Dates: start: 2010
  11. OMEGA 3 FISH OIL [Concomitant]
     Route: 048
  12. ZOCOR [Concomitant]
     Indication: BLOOD CHOLESTEROL ABNORMAL
     Route: 048
     Dates: start: 2010
  13. UBIQUINOL [Concomitant]
     Route: 065
  14. DIOVAN [Concomitant]
     Dosage: 160 MG
     Route: 048
  15. PROCTOSOL [Concomitant]
     Indication: PRURITUS
     Route: 054

REACTIONS (2)
  - Upper gastrointestinal haemorrhage [Unknown]
  - Haemorrhagic anaemia [Unknown]
